FAERS Safety Report 16120045 (Version 1)
Quarter: 2019Q1

REPORT INFORMATION
  Report Type: Spontaneous
  Country: DE (occurrence: DE)
  Receive Date: 20190326
  Receipt Date: 20190326
  Transmission Date: 20190418
  Serious: Yes (Death)
  Sender: FDA-Public Use
  Company Number: DE-009507513-1903DEU009355

PATIENT
  Age: 80 Year
  Sex: Female

DRUGS (2)
  1. REMERGIL [Suspect]
     Active Substance: MIRTAZAPINE
     Route: 065
  2. ZOLOFT [Suspect]
     Active Substance: SERTRALINE HYDROCHLORIDE
     Route: 065

REACTIONS (2)
  - Glaucoma [Fatal]
  - Sudden death [Fatal]

NARRATIVE: CASE EVENT DATE: 20000408
